FAERS Safety Report 4636883-X (Version None)
Quarter: 2005Q2

REPORT INFORMATION
  Report Type: 
  Country: None (occurrence: None)
  Receive Date: 20050415
  Receipt Date: 20050404
  Transmission Date: 20051028
  Serious: Yes (Hospitalization)
  Sender: FDA-Public Use
  Company Number: AU-MERCK-0504AUS00042

PATIENT
  Age: 63 Year
  Sex: Female
  Weight: 34 kg

DRUGS (9)
  1. VITAMINS (UNSPECIFIED) [Concomitant]
     Route: 065
  2. ZOCOR [Suspect]
     Indication: METABOLIC DISORDER
     Route: 048
     Dates: end: 19951118
  3. KETOPROFEN [Suspect]
     Indication: OSTEOARTHRITIS
     Route: 048
     Dates: end: 19951118
  4. CIMETIDINE [Suspect]
     Indication: GASTRIC DISORDER
     Route: 048
     Dates: end: 19951118
  5. PRAZOSIN HYDROCHLORIDE [Suspect]
     Indication: ESSENTIAL HYPERTENSION
     Route: 048
     Dates: end: 19951118
  6. MEDROXYPROGESTERONE ACETATE [Concomitant]
     Indication: MENOPAUSAL SYMPTOMS
     Route: 065
  7. ESTROGENS, CONJUGATED [Concomitant]
     Indication: MENOPAUSAL SYMPTOMS
     Route: 065
  8. PROMETHAZINE HYDROCHLORIDE [Concomitant]
     Route: 065
  9. ACETAMINOPHEN [Concomitant]
     Route: 065

REACTIONS (8)
  - HAEMATURIA [None]
  - MALAISE [None]
  - NEPHRITIS INTERSTITIAL [None]
  - NEUROPATHY [None]
  - PYREXIA [None]
  - PYURIA [None]
  - RED BLOOD CELL SEDIMENTATION RATE INCREASED [None]
  - RENAL FAILURE ACUTE [None]
